FAERS Safety Report 9171431 (Version 1)
Quarter: 2013Q1

REPORT INFORMATION
  Report Type: Spontaneous
  Country: US (occurrence: None)
  Receive Date: 20130318
  Receipt Date: 20130318
  Transmission Date: 20140127
  Serious: Yes (Other)
  Sender: FDA-Public Use
  Company Number: None

PATIENT
  Age: 69 Year
  Sex: Female

DRUGS (8)
  1. LETAIRIS [Suspect]
     Indication: PULMONARY HYPERTENSION
     Dosage: 5MG QD ORALLY
     Route: 048
     Dates: start: 20130201, end: 20130226
  2. REVATIO [Concomitant]
  3. COUMADIN [Concomitant]
  4. LASIX [Concomitant]
  5. LEVOTHROID [Concomitant]
  6. VERAPAMIL [Concomitant]
  7. PLAQUENIL [Concomitant]
  8. DULERA [Concomitant]

REACTIONS (1)
  - Fluid retention [None]
